FAERS Safety Report 4429901-5 (Version None)
Quarter: 2004Q3

REPORT INFORMATION
  Report Type: 
  Country: None (occurrence: None)
  Receive Date: 20040817
  Receipt Date: 20040802
  Transmission Date: 20050211
  Serious: Yes (Death)
  Sender: FDA-Public Use
  Company Number: 702121

PATIENT
  Age: 76 Year
  Sex: Male

DRUGS (4)
  1. AMEVIVE [Suspect]
     Indication: PSORIASIS
     Dosage: 15 MG QW IM
     Dates: end: 20040522
  2. AMEVIVE [Suspect]
     Indication: PSORIASIS
     Dosage: 15 MG QW IM
     Dates: end: 20040601
  3. AMEVIVE [Suspect]
     Indication: PSORIASIS
     Dosage: 15 MG QW IM
     Dates: start: 20040601, end: 20040619
  4. ANTIHYPERTENSIVE MEDICATION (NOS) [Concomitant]

REACTIONS (2)
  - ANEURYSM [None]
  - CD4 LYMPHOCYTES DECREASED [None]
